FAERS Safety Report 8853332 (Version 1)
Quarter: 2012Q4

REPORT INFORMATION
  Report Type: 
  Country: US (occurrence: US)
  Receive Date: 20121022
  Receipt Date: 20121022
  Transmission Date: 20130627
  Serious: Yes (Hospitalization)
  Sender: FDA-Public Use
  Company Number: US-ROCHE-1131433

PATIENT
  Sex: Male

DRUGS (4)
  1. RITUXAN [Suspect]
     Indication: IDIOPATHIC THROMBOCYTOPENIC PURPURA
     Route: 065
     Dates: start: 20061031
  2. PREDNISONE [Concomitant]
  3. IGIV [Concomitant]
  4. MEDROL [Concomitant]

REACTIONS (2)
  - Platelet count decreased [Unknown]
  - Swelling face [Unknown]
